FAERS Safety Report 7349160-3 (Version None)
Quarter: 2011Q1

REPORT INFORMATION
  Report Type: 
  Country: None (occurrence: None)
  Receive Date: 20110304
  Receipt Date: 20110216
  Transmission Date: 20110831
  Serious: Yes (Life-Threatening, Other)
  Sender: FDA-Public Use
  Company Number: AUR-APL-2010-02226

PATIENT
  Age: 19 Year
  Sex: Female

DRUGS (14)
  1. ONDANSETRON [Suspect]
     Dosage: 8MG - 3DAY - IV
     Route: 042
  2. ACYCLOVIR [Suspect]
  3. ALLOPURINOL [Suspect]
     Dosage: 300MG - DAILY - ORAL
     Route: 048
  4. CYCLOSPORINE [Suspect]
  5. KETALAR [Suspect]
     Indication: PAIN
     Dosage: 6ML - 1 HOURS - IV
     Route: 042
     Dates: start: 20070921, end: 20070928
  6. OMEPRAZOLE [Suspect]
  7. CHLORPHENAMINE [Suspect]
     Dosage: 10MG - 4 TIMES DAILY - IV
     Route: 042
  8. NORETHISTERONE [Suspect]
     Dosage: 5MG- 3 TIMES DAILY - ORAL
     Route: 048
  9. VORICONAZOLE [Suspect]
     Dosage: 200MG-TWICE DAILY-ORAL
     Route: 048
  10. MORPHINE [Suspect]
     Dosage: IV
     Route: 042
  11. PARACETAMOL [Suspect]
     Dosage: IV
     Route: 042
  12. CASPOFUNGIN [Suspect]
     Dosage: 70MG - DAILY - IV
     Route: 042
  13. ETOPOPHOS PRESERVATIVE FREE [Suspect]
     Dosage: 4650MG - IV
     Route: 042
     Dates: start: 20070915, end: 20070915
  14. TAZOCIN [Suspect]
     Dosage: 4.5MG- 3 TIMES DAILY - IV
     Route: 042

REACTIONS (6)
  - ALANINE AMINOTRANSFERASE INCREASED [None]
  - VENOOCCLUSIVE LIVER DISEASE [None]
  - DILATATION INTRAHEPATIC DUCT ACQUIRED [None]
  - HEPATOTOXICITY [None]
  - BLOOD BILIRUBIN INCREASED [None]
  - BLOOD ALKALINE PHOSPHATASE INCREASED [None]
